FAERS Safety Report 14393969 (Version 1)
Quarter: 2018Q1

REPORT INFORMATION
  Report Type: Spontaneous
  Country: US (occurrence: US)
  Receive Date: 20180116
  Receipt Date: 20180116
  Transmission Date: 20180509
  Serious: No
  Sender: FDA-Public Use
  Company Number: US-REGENERON PHARMACEUTICALS, INC.-2017-12014

PATIENT

DRUGS (1)
  1. EYLEA [Suspect]
     Active Substance: AFLIBERCEPT
     Indication: MACULAR DEGENERATION
     Route: 031

REACTIONS (5)
  - Visual impairment [Unknown]
  - Vitreous floaters [Unknown]
  - Corneal abrasion [Unknown]
  - Drug dose omission [Unknown]
  - Diplopia [Unknown]
